FAERS Safety Report 5638433-8 (Version None)
Quarter: 2008Q1

REPORT INFORMATION
  Report Type: 
  Country: None (occurrence: None)
  Receive Date: 20080226
  Receipt Date: 20080219
  Transmission Date: 20080703
  Serious: Yes (Other)
  Sender: FDA-Public Use
  Company Number: FR-GENENTECH-256440

PATIENT
  Sex: Female

DRUGS (3)
  1. RAPTIVA [Suspect]
     Indication: PSORIASIS
     Dates: start: 20071002, end: 20071019
  2. METHOTREXATE [Concomitant]
     Indication: DRUG USE FOR UNKNOWN INDICATION
     Dosage: 1855 UNK, UNK
     Dates: start: 20071005
  3. METHOTREXATE [Concomitant]
     Dosage: 1875 UNK, UNK
     Dates: start: 20071012

REACTIONS (3)
  - MUSCULOSKELETAL STIFFNESS [None]
  - UVEITIS [None]
  - VERTIGO [None]
